FAERS Safety Report 24728563 (Version 2)
Quarter: 2024Q4

REPORT INFORMATION
  Report Type: Spontaneous
  Country: CN (occurrence: CN)
  Receive Date: 20241212
  Receipt Date: 20241213
  Transmission Date: 20250115
  Serious: Yes (Other)
  Sender: MERCK
  Company Number: CN-009507513-2412CHN004416

PATIENT
  Age: 69 Year
  Sex: Male

DRUGS (3)
  1. TEMODAL [Suspect]
     Active Substance: TEMOZOLOMIDE
     Indication: Glioblastoma
     Dosage: 75MG/M2, QD DURING SYNCHRONIZATION
     Route: 048
     Dates: start: 20230821, end: 2023
  2. TEMODAL [Suspect]
     Active Substance: TEMOZOLOMIDE
     Dosage: IN THE FIRST CYCLE DURING MAINTENANCE TREATMENT:150 MG/M2, QD FOR 5 DAYS, AND THEN STOP FOR 23 DAYS
     Route: 048
     Dates: start: 2023, end: 2023
  3. TEMODAL [Suspect]
     Active Substance: TEMOZOLOMIDE
     Dosage: DOSE FROM CYCLE 2 TO CYCLE 6 WAS MAINTAINED AT 200 MILLIGRAM/SQ. METER, QD
     Route: 048
     Dates: start: 2023, end: 20231009

REACTIONS (2)
  - Recurrent cancer [Unknown]
  - Glioblastoma [Unknown]

NARRATIVE: CASE EVENT DATE: 20240501
